FAERS Safety Report 16252544 (Version 1)
Quarter: 2019Q2

REPORT INFORMATION
  Report Type: Spontaneous
  Country: GB (occurrence: GB)
  Receive Date: 20190429
  Receipt Date: 20190429
  Transmission Date: 20190711
  Serious: Yes (Other)
  Sender: FDA-Public Use
  Company Number: GB-MYLANLABS-2019M1040105

PATIENT
  Age: 47 Year
  Sex: Male
  Weight: 98 kg

DRUGS (7)
  1. RAMIPRIL. [Concomitant]
     Active Substance: RAMIPRIL
  2. AZARGA [Concomitant]
     Active Substance: BRINZOLAMIDE\TIMOLOL MALEATE
  3. LANSOPRAZOLE. [Concomitant]
     Active Substance: LANSOPRAZOLE
  4. TRAVOPROST. [Concomitant]
     Active Substance: TRAVOPROST
  5. ACETYLSALICYLIC ACID [Concomitant]
     Active Substance: ASPIRIN
  6. MIRTAZAPINE. [Suspect]
     Active Substance: MIRTAZAPINE
     Indication: DEPRESSION
     Dosage: 15 MILLIGRAM
     Route: 048
     Dates: start: 20181101, end: 20181105
  7. HYLO-FORTE [Concomitant]
     Active Substance: HYALURONATE SODIUM

REACTIONS (2)
  - Vitreous floaters [Unknown]
  - Blindness transient [Recovered/Resolved]

NARRATIVE: CASE EVENT DATE: 20181105
